FAERS Safety Report 18721698 (Version 2)
Quarter: 2021Q1

REPORT INFORMATION
  Report Type: Spontaneous
  Country: US (occurrence: US)
  Receive Date: 20210110
  Receipt Date: 20210217
  Transmission Date: 20210419
  Serious: No
  Sender: FDA-Public Use
  Company Number: US-ASTRAZENECA-2020SF68401

PATIENT
  Sex: Male
  Weight: 53.1 kg

DRUGS (2)
  1. BREZTRI [Suspect]
     Active Substance: BUDESONIDE\FORMOTEROL\GLYCOPYRRONIUM
     Indication: ASTHMA
     Dosage: 60MCG/9MCG/4.8MCG, TWO TIMES A DAY
     Route: 055
     Dates: start: 202011
  2. BREZTRI [Suspect]
     Active Substance: BUDESONIDE\FORMOTEROL\GLYCOPYRRONIUM
     Indication: CHRONIC OBSTRUCTIVE PULMONARY DISEASE
     Dosage: 60MCG/9MCG/4.8MCG, TWO TIMES A DAY
     Route: 055
     Dates: start: 202011

REACTIONS (3)
  - Rhinorrhoea [Unknown]
  - Device delivery system issue [Unknown]
  - Intentional device misuse [Unknown]
